FAERS Safety Report 9013282 (Version 1)
Quarter: 2013Q1

REPORT INFORMATION
  Report Type: Spontaneous
  Country: US (occurrence: None)
  Receive Date: 20130107
  Receipt Date: 20130107
  Transmission Date: 20140127
  Serious: Yes (Other)
  Sender: FDA-Public Use
  Company Number: None

PATIENT
  Age: 66 Year
  Sex: Male
  Weight: 86 kg

DRUGS (1)
  1. INVANZ [Suspect]
     Indication: LIVER ABSCESS
     Dosage: 500MG - 1G DAILY IV
     Route: 042
     Dates: start: 20121203, end: 20121223

REACTIONS (4)
  - Hypotension [None]
  - Pyrexia [None]
  - Leukocytosis [None]
  - Acute generalised exanthematous pustulosis [None]
